FAERS Safety Report 19247196 (Version 1)
Quarter: 2021Q2

REPORT INFORMATION
  Report Type: Report from Study
  Country: US (occurrence: US)
  Receive Date: 20210512
  Receipt Date: 20210512
  Transmission Date: 20210717
  Serious: Yes (Hospitalization, Other)
  Sender: FDA-Public Use
  Company Number: US-BAYER-2021-137634

PATIENT

DRUGS (2)
  1. HEPARIN [Interacting]
     Active Substance: HEPARIN SODIUM
  2. ASA [Suspect]
     Active Substance: ASPIRIN
     Dosage: UNK

REACTIONS (2)
  - Labelled drug-drug interaction medication error [None]
  - Subarachnoid haemorrhage [None]
